FAERS Safety Report 5080551-X (Version None)
Quarter: 2006Q3

REPORT INFORMATION
  Report Type: 
  Country: None (occurrence: None)
  Receive Date: 20060807
  Receipt Date: 20060728
  Transmission Date: 20061208
  Serious: Yes (Other)
  Sender: FDA-Public Use
  Company Number: 2006BH012268

PATIENT
  Age: 8 Month
  Sex: Male
  Weight: 10 kg

DRUGS (4)
  1. ADVATE [Suspect]
     Indication: FACTOR VIII DEFICIENCY
     Dosage: IV;  543 IV
     Route: 042
     Dates: start: 20060420, end: 20060423
  2. ADVATE [Suspect]
     Indication: FACTOR VIII DEFICIENCY
     Dosage: IV;  543 IV
     Route: 042
     Dates: start: 20060710, end: 20060720
  3. ADVATE [Suspect]
     Indication: FACTOR VIII DEFICIENCY
     Dosage: IV;  543 IV
     Route: 042
     Dates: start: 20060721, end: 20060721
  4. ADVATE [Suspect]
     Indication: FACTOR VIII DEFICIENCY
     Dosage: IV;  543 IV
     Route: 042
     Dates: start: 20060516

REACTIONS (2)
  - FACTOR VIII INHIBITION [None]
  - PHARMACEUTICAL PRODUCT COMPLAINT [None]
